FAERS Safety Report 11413222 (Version 1)
Quarter: 2015Q3

REPORT INFORMATION
  Report Type: Spontaneous
  Country: US (occurrence: US)
  Receive Date: 20150821
  Receipt Date: 20150821
  Transmission Date: 20151125
  Serious: Yes (Other)
  Sender: FDA-Public Use
  Company Number: US-ELI_LILLY_AND_COMPANY-US201209002376

PATIENT
  Age: 23 Year
  Sex: Female

DRUGS (1)
  1. HUMULIN R [Suspect]
     Active Substance: INSULIN HUMAN
     Dosage: UNK
     Dates: start: 201003, end: 201203

REACTIONS (3)
  - Amnesia [Unknown]
  - Hypoglycaemic unconsciousness [Unknown]
  - Aggression [Unknown]
